FAERS Safety Report 14172519 (Version 1)
Quarter: 2017Q4

REPORT INFORMATION
  Report Type: Spontaneous
  Country: DE (occurrence: DE)
  Receive Date: 20171109
  Receipt Date: 20171109
  Transmission Date: 20180321
  Serious: Yes (Other)
  Sender: FDA-Public Use
  Company Number: DE-BRISTOL-MYERS SQUIBB COMPANY-BMS-2017-099080

PATIENT
  Age: 82 Year
  Sex: Male

DRUGS (1)
  1. OPDIVO [Suspect]
     Active Substance: NIVOLUMAB
     Indication: METASTATIC RENAL CELL CARCINOMA
     Dosage: 3 MG/KG, Q2WK
     Route: 065
     Dates: start: 201603

REACTIONS (6)
  - Fatigue [Unknown]
  - Metastases to larynx [Unknown]
  - Metastases to spine [Unknown]
  - Spinal column stenosis [Unknown]
  - Pain in extremity [Unknown]
  - Sleep disorder [Unknown]

NARRATIVE: CASE EVENT DATE: 201609
